FAERS Safety Report 26207603 (Version 1)
Quarter: 2025Q4

REPORT INFORMATION
  Report Type: Spontaneous
  Country: BR (occurrence: BR)
  Receive Date: 20251229
  Receipt Date: 20251229
  Transmission Date: 20260118
  Serious: Yes (Hospitalization, Other)
  Sender: BOEHRINGER INGELHEIM
  Company Number: BR-Komodo Health-a23aa00000CqwllAAB

PATIENT
  Age: 66 Year
  Sex: Female
  Weight: 47 kg

DRUGS (4)
  1. OLODATEROL HYDROCHLORIDE\TIOTROPIUM BROMIDE MONOHYDRATE [Suspect]
     Active Substance: OLODATEROL HYDROCHLORIDE\TIOTROPIUM BROMIDE MONOHYDRATE
     Indication: Chronic obstructive pulmonary disease
     Dosage: SPIOLTO (AEROSOL) VIA INHALATION, WITH THE HELP OF A SPACER, TWO CONSECUTIVE PUFFS IN THE MORNING.
     Dates: start: 2023, end: 2025
  2. OLODATEROL HYDROCHLORIDE\TIOTROPIUM BROMIDE MONOHYDRATE [Suspect]
     Active Substance: OLODATEROL HYDROCHLORIDE\TIOTROPIUM BROMIDE MONOHYDRATE
     Dosage: SPIOLTO (AEROSOL) VIA INHALATION, WITH THE HELP OF A SPACER, ONE PUFF IN THE MORNING AND ANOTHER AT NIGHT
     Dates: start: 2025
  3. IPRATROPIUM BROMIDE [Suspect]
     Active Substance: IPRATROPIUM BROMIDE
     Indication: Chronic obstructive pulmonary disease
     Dosage: ATROVENT N (AEROSOL), ONE PUFF VIA INHALATION EVERY SIX HOURS, WITH THE HELP OF A SPACER
  4. ALBUTEROL [Concomitant]
     Active Substance: ALBUTEROL
     Indication: Chronic obstructive pulmonary disease
     Dosage: AEROLIN (AEROSOL), ONE PUFF VIA INHALATION EVERY SIX HOURS, WITH THE HELP OF A SPACER

REACTIONS (16)
  - Cerebral palsy [Unknown]
  - Hemiparesis [Unknown]
  - Dyspnoea [Not Recovered/Not Resolved]
  - Pneumonia [Recovered/Resolved]
  - Osteonecrosis [Unknown]
  - Accident [Unknown]
  - Wrong technique in device usage process [Not Recovered/Not Resolved]
  - Sarcopenia [Unknown]
  - Pulpitis dental [Recovered/Resolved]
  - Herpes zoster [Not Recovered/Not Resolved]
  - Intentional product misuse [Not Recovered/Not Resolved]
  - Device use error [Unknown]
  - Wrong technique in device usage process [Not Recovered/Not Resolved]
  - Walking aid user [Unknown]
  - Pain in extremity [Unknown]
  - Depression [Unknown]

NARRATIVE: CASE EVENT DATE: 20120101
